FAERS Safety Report 22835913 (Version 3)
Quarter: 2023Q4

REPORT INFORMATION
  Report Type: Report from Study
  Country: US (occurrence: US)
  Receive Date: 20230818
  Receipt Date: 20231207
  Transmission Date: 20240110
  Serious: Yes (Other)
  Sender: FDA-Public Use
  Company Number: US-AMX-002812

PATIENT
  Age: 76 Year
  Sex: Female

DRUGS (1)
  1. RELYVRIO [Suspect]
     Active Substance: SODIUM PHENYLBUTYRATE\TAURURSODIOL
     Indication: Amyotrophic lateral sclerosis
     Dosage: 1 SACHET ONCE DAILY FOR 3 WEEKS, THEN 1 SACHET TWICE DAILY
     Route: 048
     Dates: start: 20230214, end: 20231121

REACTIONS (7)
  - Abdominal distension [Unknown]
  - Off label use [Unknown]
  - Weight decreased [Unknown]
  - Decreased appetite [Recovering/Resolving]
  - Constipation [Unknown]
  - Abdominal discomfort [Unknown]
  - Nausea [Unknown]

NARRATIVE: CASE EVENT DATE: 20230501
